FAERS Safety Report 8294113-4 (Version None)
Quarter: 2012Q2

REPORT INFORMATION
  Report Type: 
  Country: None (occurrence: None)
  Receive Date: 20120418
  Receipt Date: 20120410
  Transmission Date: 20120825
  Serious: Yes (Life-Threatening, Other)
  Sender: FDA-Public Use
  Company Number: PHHY2011JP72062

PATIENT
  Age: 79 Year
  Sex: Female

DRUGS (3)
  1. NEORAL [Suspect]
     Dosage: 150 MG/ DAILY
     Route: 048
     Dates: start: 20110706, end: 20110808
  2. NEORAL [Suspect]
     Dosage: 100 MG,DAILY
     Route: 048
     Dates: start: 20110809
  3. NEORAL [Suspect]
     Indication: MIXED CONNECTIVE TISSUE DISEASE
     Dosage: 100 MG/ DAILY
     Route: 048
     Dates: start: 20110628, end: 20110705

REACTIONS (5)
  - PLATELET COUNT DECREASED [None]
  - URINARY TRACT INFECTION [None]
  - DISSEMINATED INTRAVASCULAR COAGULATION [None]
  - SEPSIS [None]
  - URINARY RETENTION [None]
